FAERS Safety Report 4425233-X (Version None)
Quarter: 2004Q3

REPORT INFORMATION
  Report Type: 
  Country: None (occurrence: None)
  Receive Date: 20040809
  Receipt Date: 20040726
  Transmission Date: 20050211
  Serious: Yes (Other)
  Sender: FDA-Public Use
  Company Number: 2004UW12429

PATIENT
  Age: 76 Year
  Sex: Male
  Weight: 95.2554 kg

DRUGS (7)
  1. SEROQUEL [Suspect]
     Indication: HALLUCINATION
     Dosage: 100 MG HS PO
     Route: 048
     Dates: start: 20020601
  2. SEROQUEL [Suspect]
     Indication: PARKINSON'S DISEASE
     Dosage: 100 MG HS PO
     Route: 048
     Dates: start: 20020601
  3. UNITHROID [Concomitant]
  4. CARBIDOPA [Concomitant]
  5. LEVODOPA [Concomitant]
  6. MIRAPEX [Concomitant]
  7. LUPRON [Concomitant]

REACTIONS (1)
  - ANAEMIA [None]
